FAERS Safety Report 10488163 (Version 1)
Quarter: 2014Q4

REPORT INFORMATION
  Report Type: Spontaneous
  Country: US (occurrence: US)
  Receive Date: 20141002
  Receipt Date: 20141002
  Transmission Date: 20150528
  Serious: No
  Sender: FDA-Public Use
  Company Number: US-TEVA-471018USA

PATIENT
  Sex: Female

DRUGS (1)
  1. CARBAMAZEPINE. [Suspect]
     Active Substance: CARBAMAZEPINE
     Indication: BIPOLAR DISORDER
     Dosage: 800 MILLIGRAM DAILY;
     Dates: start: 2013

REACTIONS (3)
  - Dizziness [Unknown]
  - Gait disturbance [Unknown]
  - Confusional state [Unknown]
